FAERS Safety Report 10720619 (Version 2)
Quarter: 2015Q1

REPORT INFORMATION
  Report Type: Spontaneous
  Country: US (occurrence: US)
  Receive Date: 20150119
  Receipt Date: 20150301
  Transmission Date: 20150721
  Serious: No
  Sender: FDA-Public Use
  Company Number: US-ASTRAZENECA-2015SE01192

PATIENT
  Sex: Male

DRUGS (1)
  1. SYMBICORT [Suspect]
     Active Substance: BUDESONIDE\FORMOTEROL FUMARATE DIHYDRATE
     Indication: ASTHMA
     Dosage: 160/4.5MCG, 1 PUFF, TWO TIMES A DAY
     Route: 055

REACTIONS (4)
  - Cough [Unknown]
  - Dysphonia [Unknown]
  - Intentional product misuse [Not Recovered/Not Resolved]
  - Incorrect product storage [Unknown]
